FAERS Safety Report 7538210-7 (Version None)
Quarter: 2011Q2

REPORT INFORMATION
  Report Type: 
  Country: None (occurrence: None)
  Receive Date: 20110609
  Receipt Date: 20030314
  Transmission Date: 20111010
  Serious: Yes (Other)
  Sender: FDA-Public Use
  Company Number: PHHO2003CA03148

PATIENT

DRUGS (1)
  1. CLOZAPINE [Suspect]
     Dosage: 150 MG
     Dates: start: 20030214

REACTIONS (1)
  - HIV TEST POSITIVE [None]
